FAERS Safety Report 8359481-3 (Version None)
Quarter: 2012Q2

REPORT INFORMATION
  Report Type: 
  Country: None (occurrence: None)
  Receive Date: 20120515
  Receipt Date: 20120503
  Transmission Date: 20120825
  Serious: Yes (Other)
  Sender: FDA-Public Use
  Company Number: US-ELI_LILLY_AND_COMPANY-US201205003322

PATIENT
  Sex: Male

DRUGS (5)
  1. HUMALOG MIX 75/25 [Suspect]
     Indication: DIABETES MELLITUS
     Dosage: UNK, UNKNOWN
  2. HUMALOG [Suspect]
     Dosage: 8 U, EACH EVENING
     Dates: start: 20110101
  3. HUMALOG [Suspect]
     Dosage: 12 U, BID
     Dates: start: 20110101
  4. HUMALOG [Suspect]
     Dosage: 8 U, EACH EVENING
     Dates: start: 20110101
  5. HUMALOG [Suspect]
     Indication: DIABETES MELLITUS
     Dosage: 12 U, BID
     Dates: start: 20110101

REACTIONS (2)
  - BLINDNESS [None]
  - DRUG DOSE OMISSION [None]
